FAERS Safety Report 18811573 (Version 2)
Quarter: 2021Q1

REPORT INFORMATION
  Report Type: Report from Study
  Country: FR (occurrence: FR)
  Receive Date: 20210130
  Receipt Date: 20210211
  Transmission Date: 20210419
  Serious: Yes (Hospitalization)
  Sender: FDA-Public Use
  Company Number: FR-ROCHE-2746475

PATIENT
  Age: 65 Year
  Sex: Male
  Weight: 92 kg

DRUGS (6)
  1. ATEZOLIZUMAB. [Suspect]
     Active Substance: ATEZOLIZUMAB
     Indication: BLADDER TRANSITIONAL CELL CARCINOMA
     Dosage: DATE OF LAST DOSE OF ATEZOLIZUMAB : 21/DEC/2020
     Route: 042
     Dates: start: 20200928
  2. ATACAND [Concomitant]
     Active Substance: CANDESARTAN CILEXETIL
     Dosage: 8 MG/DAY
     Route: 048
     Dates: start: 20190501
  3. BCG [Suspect]
     Active Substance: BCG VACCINE
     Indication: BLADDER TRANSITIONAL CELL CARCINOMA
     Dosage: LAST DOSE ADMINISTERED ON 04/JAN/2021 (50 ML)
     Route: 042
     Dates: start: 20200928
  4. AMIODARONE [Concomitant]
     Active Substance: AMIODARONE
     Dosage: 200 MG/DAY
     Route: 048
     Dates: start: 20190523
  5. LODOZ [Concomitant]
     Active Substance: BISOPROLOL FUMARATE\HYDROCHLOROTHIAZIDE
     Dosage: 5 MG/DAY
     Route: 048
     Dates: start: 20190501
  6. PRADAXA [Concomitant]
     Active Substance: DABIGATRAN ETEXILATE MESYLATE
     Dosage: 300 MG/DAY
     Route: 048
     Dates: start: 20190523

REACTIONS (2)
  - Granulomatous liver disease [Not Recovered/Not Resolved]
  - Cholangitis [Not Recovered/Not Resolved]

NARRATIVE: CASE EVENT DATE: 20210106
